FAERS Safety Report 4733589-3 (Version None)
Quarter: 2005Q3

REPORT INFORMATION
  Report Type: 
  Country: None (occurrence: None)
  Receive Date: 20050729
  Receipt Date: 20050718
  Transmission Date: 20060218
  Serious: Yes (Other)
  Sender: FDA-Public Use
  Company Number: 2005077978

PATIENT
  Age: 47 Year
  Sex: Female
  Weight: 75 kg

DRUGS (2)
  1. BEXTRA [Suspect]
     Indication: LIGAMENT INJURY
     Dosage: 20 MG (10 MG, 1 IN 1 AS NECESSARY), ORAL
     Route: 048
     Dates: start: 20030101, end: 20040101
  2. LIPITOR [Suspect]
     Indication: BLOOD CHOLESTEROL INCREASED
     Dosage: 20 MG (20 MG, 1 IN 1 D), ORAL
     Route: 048
     Dates: start: 20050520, end: 20050620

REACTIONS (10)
  - ALOPECIA [None]
  - CHEST PAIN [None]
  - DYSPNOEA [None]
  - FEELING ABNORMAL [None]
  - JOINT LOCK [None]
  - MUSCLE SPASMS [None]
  - PARAESTHESIA [None]
  - SENSATION OF HEAVINESS [None]
  - STOMACH DISCOMFORT [None]
  - THROAT TIGHTNESS [None]
